FAERS Safety Report 22344418 (Version 1)
Quarter: 2023Q2

REPORT INFORMATION
  Report Type: Spontaneous
  Country: CN (occurrence: CN)
  Receive Date: 20230519
  Receipt Date: 20230519
  Transmission Date: 20230722
  Serious: Yes (Hospitalization, Other)
  Sender: FDA-Public Use
  Company Number: CN-009507513-2305CHN004801

PATIENT
  Age: 63 Year
  Sex: Male
  Weight: 55 kg

DRUGS (2)
  1. CILASTATIN SODIUM\IMIPENEM [Suspect]
     Active Substance: CILASTATIN SODIUM\IMIPENEM
     Indication: Pneumonia
     Dosage: 1G, Q8H
     Dates: start: 20230413, end: 20230425
  2. SODIUM CHLORIDE [Suspect]
     Active Substance: SODIUM CHLORIDE
     Indication: Medication dilution
     Dosage: 50 ML, Q8H
     Dates: start: 20230413, end: 20230425

REACTIONS (2)
  - Dysbiosis [Recovering/Resolving]
  - Product preparation issue [Unknown]

NARRATIVE: CASE EVENT DATE: 20230413
